FAERS Safety Report 22535273 (Version 1)
Quarter: 2023Q2

REPORT INFORMATION
  Report Type: Spontaneous
  Country: US (occurrence: None)
  Receive Date: 20230607
  Receipt Date: 20230607
  Transmission Date: 20230722
  Serious: Yes (Life-Threatening, Hospitalization, Disabling, Other)
  Sender: FDA-Public Use
  Company Number: None

PATIENT
  Age: 36 Year
  Sex: Female

DRUGS (1)
  1. DAYVIGO [Suspect]
     Active Substance: LEMBOREXANT

REACTIONS (4)
  - Lupus-like syndrome [None]
  - Gait inability [None]
  - Renal pain [None]
  - Therapy cessation [None]

NARRATIVE: CASE EVENT DATE: 20230524
